FAERS Safety Report 8255377-6 (Version None)
Quarter: 2012Q2

REPORT INFORMATION
  Report Type: 
  Country: None (occurrence: None)
  Receive Date: 20120403
  Receipt Date: 20120328
  Transmission Date: 20120825
  Serious: Yes (Life-Threatening, Hospitalization)
  Sender: FDA-Public Use
  Company Number: JP-SANOFI-AVENTIS-2012SA015292

PATIENT
  Age: 74 Year
  Sex: Male

DRUGS (8)
  1. TAXOTERE [Suspect]
     Route: 065
     Dates: end: 20111201
  2. TAXOTERE [Suspect]
     Indication: PROSTATE CANCER
     Route: 042
     Dates: start: 20110203, end: 20111013
  3. DEXAMETHASONE [Suspect]
     Route: 048
     Dates: start: 20110203
  4. CASODEX [Concomitant]
  5. ESTRACYT [Suspect]
     Dosage: DOSE: 156.7 X 2 X 2 TIMES/ 3 DAYS
     Route: 048
     Dates: start: 20110203, end: 20111015
  6. PROSTAL [Concomitant]
  7. ESTRACYT [Suspect]
     Dosage: DOSE: 156.7 X 2 X 2 TIMES
     Route: 048
     Dates: start: 20091008, end: 20110131
  8. LEUPROLIDE ACETATE [Concomitant]
     Dates: start: 19990810, end: 20110114

REACTIONS (4)
  - OEDEMA PERIPHERAL [None]
  - DYSPNOEA [None]
  - PULMONARY INFARCTION [None]
  - VENOUS THROMBOSIS LIMB [None]
